FAERS Safety Report 12448613 (Version 1)
Quarter: 2016Q2

REPORT INFORMATION
  Report Type: Spontaneous
  Country: CZ (occurrence: CZ)
  Receive Date: 20160608
  Receipt Date: 20160608
  Transmission Date: 20160815
  Serious: Yes (Hospitalization)
  Sender: FDA-Public Use
  Company Number: CZ-UCBSA-2016021169

PATIENT
  Age: 23 Year
  Sex: Female
  Weight: 57 kg

DRUGS (7)
  1. CIMZIA [Suspect]
     Active Substance: CERTOLIZUMAB PEGOL
     Indication: JUVENILE IDIOPATHIC ARTHRITIS
     Dosage: UNK
     Dates: start: 201302, end: 201412
  2. ACIDUM FOLICUM [Concomitant]
     Active Substance: FOLIC ACID
     Indication: JUVENILE IDIOPATHIC ARTHRITIS
     Dosage: 10 MG, 3X/WEEK
     Route: 048
  3. METHOTREXATE [Concomitant]
     Active Substance: METHOTREXATE
     Indication: JUVENILE IDIOPATHIC ARTHRITIS
     Dosage: UNK
     Dates: start: 200809
  4. NEBILET [Concomitant]
     Active Substance: NEBIVOLOL
     Indication: HYPERTENSION
     Dosage: 5 MG, ONCE DAILY (QD)
     Route: 048
  5. CIMZIA [Suspect]
     Active Substance: CERTOLIZUMAB PEGOL
     Dosage: 200 MG, EV 2 WEEKS(QOW); II. CYCLE
     Route: 058
     Dates: start: 20150320, end: 20160215
  6. AMOKSIKLAV [Concomitant]
     Active Substance: AMOXICILLIN\CLAVULANATE POTASSIUM
     Indication: PYELONEPHRITIS ACUTE
     Dosage: UNK
     Route: 042
  7. TREXAN [Concomitant]
     Active Substance: METHOTREXATE SODIUM
     Indication: JUVENILE IDIOPATHIC ARTHRITIS
     Dosage: 2.5 MG, 6X/WEEK (STRENGTH: 2.5 MG)
     Route: 048
     Dates: start: 20140219

REACTIONS (2)
  - Pyelonephritis acute [Recovered/Resolved]
  - Urethral stricture post infection [Unknown]

NARRATIVE: CASE EVENT DATE: 20160222
